FAERS Safety Report 16175502 (Version 1)
Quarter: 2019Q2

REPORT INFORMATION
  Report Type: Spontaneous
  Country: US (occurrence: US)
  Receive Date: 20190409
  Receipt Date: 20190409
  Transmission Date: 20190711
  Serious: Yes (Hospitalization, Congenital Anomaly, Other)
  Sender: FDA-Public Use
  Company Number: US-009507513-97042103

PATIENT
  Age: 0 Year
  Sex: Female
  Weight: 0 kg

DRUGS (9)
  1. PNEUMOVAX 23 [Concomitant]
     Active Substance: PNEUMOCOCCAL VACCINE, POLYVALENT 23
     Indication: PROPHYLAXIS
     Dates: start: 19960130
  2. BACTRIM [Concomitant]
     Active Substance: SULFAMETHOXAZOLE\TRIMETHOPRIM
     Dates: start: 199601
  3. FLUCONAZOLE. [Concomitant]
     Active Substance: FLUCONAZOLE
     Dosage: 800 MG, UNK
     Dates: start: 199512
  4. CRIXIVAN [Suspect]
     Active Substance: INDINAVIR SULFATE
     Indication: ACQUIRED IMMUNODEFICIENCY SYNDROME
     Dosage: 800 MG, TID
     Route: 048
     Dates: start: 19960807, end: 19970205
  5. LAMIVUDINE. [Concomitant]
     Active Substance: LAMIVUDINE
     Dosage: 300 MG, UNK
     Dates: start: 19960424
  6. AZITHROMYCIN ANHYDROUS. [Concomitant]
     Active Substance: AZITHROMYCIN ANHYDROUS
     Dates: start: 199610
  7. ZIDOVUDINE. [Concomitant]
     Active Substance: ZIDOVUDINE
     Dosage: 600 MG, UNK
     Dates: start: 19960424
  8. MYCOBUTIN [Concomitant]
     Active Substance: RIFABUTIN
     Dosage: 900 MG, UNK
     Dates: start: 199601, end: 19960807
  9. NEVIRAPINE. [Concomitant]
     Active Substance: NEVIRAPINE
     Dosage: 200 MG, UNK
     Dates: start: 19970205, end: 19970312

REACTIONS (4)
  - Exomphalos [Unknown]
  - Exposure during pregnancy [Unknown]
  - Talipes [Unknown]
  - Rash [Unknown]

NARRATIVE: CASE EVENT DATE: 199610
